FAERS Safety Report 6925486-X (Version None)
Quarter: 2010Q3

REPORT INFORMATION
  Report Type: 
  Country: None (occurrence: None)
  Receive Date: 20100816
  Receipt Date: 20100805
  Transmission Date: 20110219
  Serious: No
  Sender: FDA-Public Use
  Company Number: US-JNJFOC-20100508266

PATIENT
  Age: 2 Year
  Sex: Male
  Weight: 13.15 kg

DRUGS (3)
  1. CHILDREN'S MOTRIN [Suspect]
     Route: 048
  2. CHILDREN'S MOTRIN [Suspect]
     Indication: NASOPHARYNGITIS
     Dosage: DOSE PER LABEL INSTRUCTIONS, ONCE A DAY IF THAT
     Route: 048
  3. CHILDRENS CHEWABLE VITAMINS [Concomitant]
     Indication: NASOPHARYNGITIS

REACTIONS (2)
  - CARDIAC MURMUR [None]
  - PRODUCT QUALITY ISSUE [None]
